FAERS Safety Report 25057649 (Version 1)
Quarter: 2025Q1

REPORT INFORMATION
  Report Type: Spontaneous
  Country: US (occurrence: US)
  Receive Date: 20250310
  Receipt Date: 20250310
  Transmission Date: 20250408
  Serious: No
  Sender: ARS PHARMACEUTICALS OPERATIONS, INC.
  Company Number: US-ARS PHARMACEUTICALS OPERATIONS, INC.-2024ARP00020

PATIENT
  Sex: Female

DRUGS (2)
  1. NEFFY [Suspect]
     Active Substance: EPINEPHRINE
     Indication: Hypersensitivity
     Route: 045
  2. NEFFY [Suspect]
     Active Substance: EPINEPHRINE
     Indication: Allergy test

REACTIONS (2)
  - Ocular hyperaemia [Recovered/Resolved]
  - Headache [Recovered/Resolved]
